FAERS Safety Report 4366044-3 (Version None)
Quarter: 2004Q2

REPORT INFORMATION
  Report Type: 
  Country: None (occurrence: None)
  Receive Date: 20040524
  Receipt Date: 20040507
  Transmission Date: 20050107
  Serious: Yes (Hospitalization)
  Sender: FDA-Public Use
  Company Number: 2004AP02570

PATIENT
  Age: 63 Year
  Sex: Female

DRUGS (7)
  1. OMEPRAZOLE [Suspect]
  2. DOXEPIN HCL [Suspect]
  3. IRBESARTAN [Suspect]
  4. APRINOX [Concomitant]
  5. ASPIRIN [Concomitant]
  6. OXAZEPAM [Concomitant]
  7. PREDNISOLONE [Concomitant]

REACTIONS (2)
  - NEPHRITIS INTERSTITIAL [None]
  - RENAL FAILURE ACUTE [None]
